FAERS Safety Report 18330319 (Version 3)
Quarter: 2020Q4

REPORT INFORMATION
  Report Type: Spontaneous
  Country: US (occurrence: US)
  Receive Date: 20200930
  Receipt Date: 20201225
  Transmission Date: 20210113
  Serious: Yes (Death, Hospitalization, Other)
  Sender: FDA-Public Use
  Company Number: US-ASTRAZENECA-2020SF24234

PATIENT
  Age: 26248 Day
  Sex: Male
  Weight: 77.1 kg

DRUGS (82)
  1. NEXIUM [Suspect]
     Active Substance: ESOMEPRAZOLE MAGNESIUM
     Indication: GASTROOESOPHAGEAL REFLUX DISEASE
     Route: 048
     Dates: start: 2001, end: 2019
  2. PRILOSEC [Suspect]
     Active Substance: OMEPRAZOLE MAGNESIUM
     Indication: GASTROOESOPHAGEAL REFLUX DISEASE
     Dosage: GENERIC
     Route: 048
     Dates: start: 1996, end: 1997
  3. PRILOSEC [Suspect]
     Active Substance: OMEPRAZOLE MAGNESIUM
     Indication: GASTROOESOPHAGEAL REFLUX DISEASE
     Route: 048
     Dates: start: 2001, end: 2019
  4. ATORVASTATIN CALCIUM. [Concomitant]
     Active Substance: ATORVASTATIN CALCIUM
     Indication: BLOOD TRIGLYCERIDES
     Dates: start: 2018, end: 2019
  5. DICLOFENAC SODIUM. [Concomitant]
     Active Substance: DICLOFENAC SODIUM
     Indication: ARTHRALGIA
     Dates: start: 2017
  6. FLONASE [Concomitant]
     Active Substance: FLUTICASONE PROPIONATE
     Indication: HYPERSENSITIVITY
     Dates: start: 2010, end: 2011
  7. LEVOTHYROXINE. [Concomitant]
     Active Substance: LEVOTHYROXINE
     Indication: HYPOTHYROIDISM
     Dates: start: 2010, end: 2018
  8. TAMIFLU [Concomitant]
     Active Substance: OSELTAMIVIR PHOSPHATE
  9. SULAR [Concomitant]
     Active Substance: NISOLDIPINE
  10. VIAGRA [Concomitant]
     Active Substance: SILDENAFIL CITRATE
  11. VOLTAREN [Concomitant]
     Active Substance: DICLOFENAC SODIUM
  12. VITAMIN C [Concomitant]
     Active Substance: ASCORBIC ACID
  13. CLONIDINE. [Concomitant]
     Active Substance: CLONIDINE
     Indication: HYPERTENSION
     Dates: start: 2014
  14. COREG CR [Concomitant]
     Active Substance: CARVEDILOL PHOSPHATE
     Indication: HYPERTENSION
     Dates: start: 2010, end: 2012
  15. COREG CR [Concomitant]
     Active Substance: CARVEDILOL PHOSPHATE
     Indication: CARDIAC FAILURE
     Dates: start: 2010, end: 2012
  16. CRESTOR [Concomitant]
     Active Substance: ROSUVASTATIN CALCIUM
     Indication: BLOOD CHOLESTEROL INCREASED
     Dates: start: 2010
  17. CRESTOR [Concomitant]
     Active Substance: ROSUVASTATIN CALCIUM
     Indication: BLOOD TRIGLYCERIDES
     Dates: start: 2012, end: 2017
  18. CYMBALTA [Concomitant]
     Active Substance: DULOXETINE HYDROCHLORIDE
     Indication: DEPRESSION
     Dates: start: 2012, end: 2014
  19. FAMOTIDINE. [Concomitant]
     Active Substance: FAMOTIDINE
     Indication: GASTROOESOPHAGEAL REFLUX DISEASE
     Dates: start: 2016, end: 2019
  20. FINASTERIDE. [Concomitant]
     Active Substance: FINASTERIDE
     Indication: PROSTATOMEGALY
     Dates: start: 2010, end: 2012
  21. IPRATROPIUM BROMIDE. [Concomitant]
     Active Substance: IPRATROPIUM BROMIDE
     Indication: CHRONIC OBSTRUCTIVE PULMONARY DISEASE
     Dates: start: 2014, end: 2015
  22. TERAZOSIN [Concomitant]
     Active Substance: TERAZOSIN HYDROCHLORIDE
  23. NITROLINGUAL [Concomitant]
     Active Substance: NITROGLYCERIN
  24. NEXIUM [Suspect]
     Active Substance: ESOMEPRAZOLE MAGNESIUM
     Indication: GASTROOESOPHAGEAL REFLUX DISEASE
     Route: 048
     Dates: start: 2010, end: 2017
  25. PRILOSEC [Suspect]
     Active Substance: OMEPRAZOLE MAGNESIUM
     Indication: GASTROOESOPHAGEAL REFLUX DISEASE
     Route: 048
     Dates: start: 1997, end: 2005
  26. RABEPRAZOLE [Suspect]
     Active Substance: RABEPRAZOLE
     Indication: GASTROOESOPHAGEAL REFLUX DISEASE
     Route: 065
     Dates: start: 2001
  27. CEFADROXIL. [Concomitant]
     Active Substance: CEFADROXIL
     Indication: BACTERIAL INFECTION
     Dates: start: 2018
  28. COLCHICINE. [Concomitant]
     Active Substance: COLCHICINE
     Indication: GOUT
     Dates: start: 2017
  29. CYMBALTA [Concomitant]
     Active Substance: DULOXETINE HYDROCHLORIDE
     Indication: MYALGIA
     Dates: start: 2012, end: 2014
  30. DYMISTA [Concomitant]
     Active Substance: AZELASTINE HYDROCHLORIDE\FLUTICASONE PROPIONATE
     Indication: SEASONAL ALLERGY
     Dates: start: 2014, end: 2015
  31. ESCITALOPRAM OXALATE. [Concomitant]
     Active Substance: ESCITALOPRAM OXALATE
     Indication: DEPRESSION
     Dates: start: 2015
  32. HYDROCORTISONE. [Concomitant]
     Active Substance: HYDROCORTISONE
     Indication: ROUTINE HEALTH MAINTENANCE
     Dates: start: 2018
  33. TWINRIX [Concomitant]
     Active Substance: HEPATITIS A VIRUS STRAIN HM175 ANTIGEN (FORMALDEHYDE INACTIVATED)\HEPATITIS B VIRUS SUBTYPE ADW2 HBSAG SURFACE PROTEIN ANTIGEN
  34. PEPCID [Concomitant]
     Active Substance: FAMOTIDINE
  35. PANTOPRAZOLE [Suspect]
     Active Substance: PANTOPRAZOLE
     Indication: GASTROOESOPHAGEAL REFLUX DISEASE
     Route: 065
     Dates: start: 2017, end: 2019
  36. CEPHALEXIN. [Concomitant]
     Active Substance: CEPHALEXIN
     Indication: INFECTION
     Dates: start: 2014
  37. CLONIDINE. [Concomitant]
     Active Substance: CLONIDINE
     Indication: HYPERTENSION
     Dates: start: 2016, end: 2018
  38. CRESTOR [Concomitant]
     Active Substance: ROSUVASTATIN CALCIUM
     Indication: BLOOD TRIGLYCERIDES
     Dates: start: 2010
  39. CYMBALTA [Concomitant]
     Active Substance: DULOXETINE HYDROCHLORIDE
     Indication: ANXIETY
     Dates: start: 2012, end: 2014
  40. CYMBALTA [Concomitant]
     Active Substance: DULOXETINE HYDROCHLORIDE
     Indication: DIABETIC NEUROPATHY
     Dates: start: 2012, end: 2014
  41. CYMBALTA [Concomitant]
     Active Substance: DULOXETINE HYDROCHLORIDE
     Indication: FIBROMYALGIA
     Dates: start: 2012, end: 2014
  42. DICLOFENAC SODIUM. [Concomitant]
     Active Substance: DICLOFENAC SODIUM
     Indication: ARTHRALGIA
     Dates: start: 2019
  43. FLUZONE [Concomitant]
     Active Substance: INFLUENZA A VIRUS A/CALIFORNIA/7/2009 X-179A (H1N1) ANTIGEN (FORMALDEHYDE INACTIVATED)\INFLUENZA A VIRUS A/VICTORIA/210/2009 X-187 (H3N2) ANTIGEN (FORMALDEHYDE INACTIVATED)\INFLUENZA B VIRUS B/BRISBANE/60/2008 ANTIGEN (FORMALDEHYDE INACTIVATED)
     Indication: INFLUENZA
     Dates: start: 2016
  44. JANUVIA [Concomitant]
     Active Substance: SITAGLIPTIN PHOSPHATE
     Indication: TYPE 2 DIABETES MELLITUS
     Dates: start: 2010, end: 2019
  45. VITAMIN D3 [Concomitant]
     Active Substance: CHOLECALCIFEROL
  46. ZANTAC [Concomitant]
     Active Substance: RANITIDINE HYDROCHLORIDE
  47. AMLODIPINE BESYLATE. [Concomitant]
     Active Substance: AMLODIPINE BESYLATE
     Indication: CHEST PAIN
     Dates: start: 2012, end: 2019
  48. CELECOXIB. [Concomitant]
     Active Substance: CELECOXIB
     Indication: PAIN
     Dates: start: 2015
  49. CIALIS [Concomitant]
     Active Substance: TADALAFIL
     Indication: ERECTILE DYSFUNCTION
     Dates: start: 2015, end: 2017
  50. DICLOFENAC SODIUM. [Concomitant]
     Active Substance: DICLOFENAC SODIUM
     Indication: ARTHRITIS
     Dates: start: 2019
  51. FLUAD NOS [Concomitant]
     Active Substance: INFLUENZA VIRUS VACCINE
     Indication: INFLUENZA
     Dates: start: 2017, end: 2018
  52. FLUOCINOLONE [Concomitant]
     Active Substance: FLUOCINOLONE
     Indication: ECZEMA
     Dates: start: 2014
  53. FLUTICASONE PROPIONATE. [Concomitant]
     Active Substance: FLUTICASONE PROPIONATE
     Indication: ASTHMA
     Dates: start: 2013, end: 2014
  54. KETOCONAZOLE. [Concomitant]
     Active Substance: KETOCONAZOLE
     Indication: FUNGAL INFECTION
     Dates: start: 2018
  55. PRADAXA [Concomitant]
     Active Substance: DABIGATRAN ETEXILATE MESYLATE
  56. ACETAMINOPHEN-CODEIN [Concomitant]
     Indication: PAIN
     Dates: start: 2013
  57. AMLODIPINE BESYLATE. [Concomitant]
     Active Substance: AMLODIPINE BESYLATE
     Indication: HYPERTENSION
     Dates: start: 2012, end: 2019
  58. AZITHROMYCIN ANHYDROUS. [Concomitant]
     Active Substance: AZITHROMYCIN ANHYDROUS
     Indication: INFECTION
     Dates: start: 2015, end: 2016
  59. CALOMIST [Concomitant]
     Active Substance: CYANOCOBALAMIN
     Indication: VITAMIN B12 DEFICIENCY
     Dates: start: 2010
  60. CELEBREX [Concomitant]
     Active Substance: CELECOXIB
     Indication: PAIN
     Dates: start: 2010, end: 2012
  61. CYMBALTA [Concomitant]
     Active Substance: DULOXETINE HYDROCHLORIDE
     Indication: BONE PAIN
     Dates: start: 2012, end: 2014
  62. DICLOFENAC SODIUM. [Concomitant]
     Active Substance: DICLOFENAC SODIUM
     Indication: ARTHRITIS
     Dates: start: 2017
  63. ESCITALOPRAM OXALATE. [Concomitant]
     Active Substance: ESCITALOPRAM OXALATE
     Indication: ANXIETY
     Dates: start: 2015
  64. HYDROCODONE-ACETAMINOPHEN [Concomitant]
     Active Substance: ACETAMINOPHEN\HYDROCODONE
     Indication: SEIZURE
     Dates: start: 2015, end: 2016
  65. AMOXICILLIN. [Concomitant]
     Active Substance: AMOXICILLIN
     Indication: INFECTION
     Dates: start: 2014, end: 2018
  66. AMOXICILLIN. [Concomitant]
     Active Substance: AMOXICILLIN
     Indication: GASTRIC ULCER
     Dates: start: 2014, end: 2018
  67. ATORVASTATIN CALCIUM. [Concomitant]
     Active Substance: ATORVASTATIN CALCIUM
     Indication: BLOOD CHOLESTEROL INCREASED
     Dates: start: 2018, end: 2019
  68. CLONIDINE. [Concomitant]
     Active Substance: CLONIDINE
     Indication: HYPERTENSION
     Dates: start: 2011, end: 2012
  69. FAMOTIDINE. [Concomitant]
     Active Substance: FAMOTIDINE
     Indication: ULCER
     Dates: start: 2016, end: 2019
  70. GABAPENTIN. [Concomitant]
     Active Substance: GABAPENTIN
     Indication: SEIZURE
     Dates: start: 2014, end: 2017
  71. IPRATROPIUM BROMIDE. [Concomitant]
     Active Substance: IPRATROPIUM BROMIDE
     Indication: CHRONIC OBSTRUCTIVE PULMONARY DISEASE
     Dates: start: 2019
  72. LEVOFLOXACIN. [Concomitant]
     Active Substance: LEVOFLOXACIN
     Indication: INFECTION
     Dates: start: 2013
  73. SYNTHROID [Concomitant]
     Active Substance: LEVOTHYROXINE SODIUM
  74. VALSARTAN. [Concomitant]
     Active Substance: VALSARTAN
  75. VITAMIN E [Concomitant]
     Active Substance: .ALPHA.-TOCOPHEROL
  76. PATADAY [Concomitant]
     Active Substance: OLOPATADINE HYDROCHLORIDE
  77. NEXIUM [Suspect]
     Active Substance: ESOMEPRAZOLE MAGNESIUM
     Indication: GASTROOESOPHAGEAL REFLUX DISEASE
     Route: 048
     Dates: start: 2002
  78. CRESTOR [Concomitant]
     Active Substance: ROSUVASTATIN CALCIUM
     Indication: BLOOD CHOLESTEROL INCREASED
     Dates: start: 2012, end: 2017
  79. DIOVAN [Concomitant]
     Active Substance: VALSARTAN
     Indication: HYPERTENSION
     Dates: start: 2012, end: 2015
  80. FLUOROURACIL. [Concomitant]
     Active Substance: FLUOROURACIL
     Indication: SKIN CANCER
     Dates: start: 2018
  81. COENZYME Q10 [Concomitant]
     Active Substance: DIETARY SUPPLEMENT\UBIDECARENONE
  82. SOTALOL. [Concomitant]
     Active Substance: SOTALOL

REACTIONS (9)
  - End stage renal disease [Unknown]
  - Renal tubular necrosis [Unknown]
  - Renal failure [Unknown]
  - Acute pulmonary oedema [Fatal]
  - Ischaemic cardiomyopathy [Fatal]
  - Acute kidney injury [Unknown]
  - Nephrogenic anaemia [Unknown]
  - Respiratory failure [Fatal]
  - Chronic kidney disease [Unknown]

NARRATIVE: CASE EVENT DATE: 20070314
